FAERS Safety Report 5197527-4 (Version None)
Quarter: 2006Q4

REPORT INFORMATION
  Report Type: 
  Country: None (occurrence: None)
  Receive Date: 20061228
  Receipt Date: 20061219
  Transmission Date: 20070319
  Serious: Yes (Life-Threatening)
  Sender: FDA-Public Use
  Company Number: CHNY2006DE03460

PATIENT
  Sex: Male

DRUGS (3)
  1. TAVEGYL (NCH)(CLEMASTINE HYDROGEN FUMARATE) AMPOULE [Suspect]
     Indication: PROPHYLACTIC CHEMOTHERAPY
     Dosage: INTRAVENOUS
     Route: 042
     Dates: start: 20061201
  2. SOLU-DECORTIN-H (PREDNISOLONE SODIUM SUCCINATE) [Suspect]
     Indication: PROPHYLACTIC CHEMOTHERAPY
     Dosage: INTRAVENOUS
     Route: 042
     Dates: start: 20061201
  3. PACLITAXEL [Concomitant]

REACTIONS (4)
  - HOT FLUSH [None]
  - PUPIL FIXED [None]
  - RESPIRATORY ARREST [None]
  - RESPIRATORY FAILURE [None]
